FAERS Safety Report 6399566-4 (Version None)
Quarter: 2009Q4

REPORT INFORMATION
  Report Type: 
  Country: None (occurrence: None)
  Receive Date: 20091014
  Receipt Date: 20091008
  Transmission Date: 20100525
  Serious: Yes (Other)
  Sender: FDA-Public Use
  Company Number: US-ELI_LILLY_AND_COMPANY-US200905001252

PATIENT
  Sex: Female
  Weight: 75.737 kg

DRUGS (9)
  1. SOMATROPIN [Suspect]
     Indication: GROWTH HORMONE DEFICIENCY
     Dosage: 0.2 MG, DAILY (1/D)
     Dates: start: 20050601, end: 20080731
  2. LEVOXYL [Concomitant]
     Dosage: 0.1 MG, DAILY (1/D)
     Route: 048
  3. ORAL CONTRACEPTIVE NOS [Concomitant]
     Dosage: UNK, UNK
     Dates: end: 20090501
  4. METFORMIN HYDROCHLORIDE [Concomitant]
     Dosage: 1000 MG, 2/D
     Route: 048
  5. GLIPIZIDE [Concomitant]
     Dosage: 10 MG, 2/D
     Route: 048
  6. LISINOPRIL [Concomitant]
     Dosage: 20 MG, DAILY (1/D)
     Route: 048
  7. CRESTOR [Concomitant]
     Dosage: 10 MG, EACH EVENING
     Route: 048
  8. ASPIRIN [Concomitant]
     Dosage: 81 MG, DAILY (1/D)
     Route: 048
  9. CALTRATE [Concomitant]
     Dosage: 600 MG, 3/D
     Route: 048

REACTIONS (1)
  - BREAST CANCER [None]
